FAERS Safety Report 25545597 (Version 2)
Quarter: 2025Q3

REPORT INFORMATION
  Report Type: Report from Study
  Country: US (occurrence: US)
  Receive Date: 20250711
  Receipt Date: 20250810
  Transmission Date: 20251021
  Serious: Yes (Hospitalization)
  Sender: ALEXION PHARMACEUTICALS
  Company Number: US-AstraZeneca-CH-00905679A

PATIENT
  Sex: Male
  Weight: 99.79 kg

DRUGS (30)
  1. CALQUENCE [Suspect]
     Active Substance: ACALABRUTINIB
     Indication: Chronic lymphocytic leukaemia
     Dosage: 100 MILLIGRAM, BID
  2. APAP [Concomitant]
     Active Substance: ACETAMINOPHEN
     Route: 065
  3. ASCORBIC ACID [Concomitant]
     Active Substance: ASCORBIC ACID
     Route: 065
  4. VITAMIN D3 [Concomitant]
     Active Substance: CHOLECALCIFEROL
     Route: 065
  5. PLAVIX [Concomitant]
     Active Substance: CLOPIDOGREL BISULFATE
     Route: 065
  6. CYMBALTA [Concomitant]
     Active Substance: DULOXETINE HYDROCHLORIDE
     Route: 065
  7. JARDIANCE [Concomitant]
     Active Substance: EMPAGLIFLOZIN
     Route: 065
  8. INSPRA [Concomitant]
     Active Substance: EPLERENONE
     Route: 065
  9. FINASTERIDE [Concomitant]
     Active Substance: FINASTERIDE
     Route: 065
  10. TRELEGY ELLIPTA [Concomitant]
     Active Substance: FLUTICASONE FUROATE\UMECLIDINIUM BROMIDE\VILANTEROL TRIFENATATE
     Route: 065
  11. LORATADINE [Concomitant]
     Active Substance: LORATADINE
     Route: 065
  12. LUTEIN [Concomitant]
     Active Substance: LUTEIN
     Route: 065
  13. VITAMINS [Concomitant]
     Active Substance: VITAMINS
     Route: 065
  14. NYSTATIN [Concomitant]
     Active Substance: NYSTATIN
     Route: 065
  15. XARELTO [Concomitant]
     Active Substance: RIVAROXABAN
     Route: 065
  16. ROSUVASTATIN [Concomitant]
     Active Substance: ROSUVASTATIN
     Route: 065
  17. TORSEMIDE [Concomitant]
     Active Substance: TORSEMIDE
     Route: 065
  18. COENZYME Q10 [Concomitant]
     Active Substance: DIETARY SUPPLEMENT\UBIDECARENONE
     Route: 065
  19. CLOTRIMAZOLE [Concomitant]
     Active Substance: CLOTRIMAZOLE
     Route: 065
  20. VALSARTAN [Concomitant]
     Active Substance: VALSARTAN
     Route: 065
  21. METOPROLOL [Concomitant]
     Active Substance: METOPROLOL
     Route: 065
  22. KETOCONAZOLE [Concomitant]
     Active Substance: KETOCONAZOLE
     Route: 065
  23. Triple Paste [Concomitant]
     Route: 065
  24. NAFTIN [Concomitant]
     Active Substance: NAFTIFINE HYDROCHLORIDE
     Route: 065
  25. MOLNUPIRAVIR [Concomitant]
     Active Substance: MOLNUPIRAVIR
     Route: 065
  26. BENZONATATE [Concomitant]
     Active Substance: BENZONATATE
     Route: 065
  27. ROBITUSSIN (GUAIFENESIN) [Concomitant]
     Active Substance: GUAIFENESIN
     Route: 065
  28. DOCUSATE [Concomitant]
     Active Substance: DOCUSATE
     Route: 065
  29. CALENDULA [Concomitant]
     Active Substance: CALENDULA OFFICINALIS FLOWERING TOP
     Route: 065
  30. HYDROCORTISONE [Concomitant]
     Active Substance: HYDROCORTISONE
     Route: 065

REACTIONS (2)
  - Oedema [Recovering/Resolving]
  - Fungal infection [Recovering/Resolving]
